FAERS Safety Report 24603033 (Version 1)
Quarter: 2024Q4

REPORT INFORMATION
  Report Type: Spontaneous
  Country: US (occurrence: None)
  Receive Date: 20241108
  Receipt Date: 20241108
  Transmission Date: 20250114
  Serious: Yes (Other)
  Sender: Public
  Company Number: None

PATIENT
  Sex: Female

DRUGS (10)
  1. HUMIRA [Suspect]
     Active Substance: ADALIMUMAB
     Indication: Rheumatoid arthritis
     Dosage: FREQ: INJECT 40 MG UNDER THE SKIN (SUBCUTANEOUS INJECTION) BIWEEKLY
     Route: 058
     Dates: start: 20181012
  2. ALPRAZOLAM TAB 0.25MG [Concomitant]
  3. ASPIRIN [Concomitant]
     Active Substance: ASPIRIN
  4. ASPIRIN LOW TAB 81 MG EC [Concomitant]
  5. CLOTRIM/BETA CRE 1-0.05% [Concomitant]
  6. FLUCONAZOLE TAB 150MG [Concomitant]
  7. FLUTICASONE [Concomitant]
     Active Substance: FLUTICASONE
  8. HYDROCORT CRE 1% [Concomitant]
  9. IBUPROFEN [Concomitant]
     Active Substance: IBUPROFEN
  10. MONTELUKAST SODIUM [Concomitant]
     Active Substance: MONTELUKAST SODIUM

REACTIONS (6)
  - Kidney infection [None]
  - Therapy interrupted [None]
  - Arthralgia [None]
  - Arthralgia [None]
  - Arthralgia [None]
  - Loss of personal independence in daily activities [None]
